FAERS Safety Report 10480088 (Version 1)
Quarter: 2014Q3

REPORT INFORMATION
  Report Type: Spontaneous
  Country: DE (occurrence: None)
  Receive Date: 20140925
  Receipt Date: 20140925
  Transmission Date: 20150326
  Serious: Yes (Other)
  Sender: FDA-Public Use
  Company Number: NL01PV14.37338

PATIENT
  Age: 44 Year
  Sex: Female
  Weight: 65 kg

DRUGS (3)
  1. PERAZINE DIMALONATE [Suspect]
     Active Substance: PERAZINE DIMALONATE
     Dosage: 4 TABLETS
     Route: 048
  2. ZOLPIDEM [Suspect]
     Active Substance: ZOLPIDEM\ZOLPIDEM TARTRATE
     Dosage: 10 TABLETS
     Route: 048
  3. LITHIUM [Suspect]
     Active Substance: LITHIUM CARBONATE
     Dosage: 29 TABLETS A 0.022 G
     Route: 048

REACTIONS (4)
  - Somnolence [None]
  - Polyuria [None]
  - Suicide attempt [None]
  - Blood pressure increased [None]
